FAERS Safety Report 20991574 (Version 1)
Quarter: 2022Q2

REPORT INFORMATION
  Report Type: Report from Study
  Country: CN (occurrence: CN)
  Receive Date: 20220622
  Receipt Date: 20220622
  Transmission Date: 20220721
  Serious: Yes (Hospitalization)
  Sender: FDA-Public Use
  Company Number: CN-TEVA-2022-CN-2046851

PATIENT
  Age: 69 Year
  Sex: Male

DRUGS (13)
  1. BENDAMUSTINE [Suspect]
     Active Substance: BENDAMUSTINE
     Indication: Diffuse large B-cell lymphoma refractory
     Dosage: ON 03/SEP/2020, RECEIVED MOST RECENT DOSE (151.2 MG) OF BENDAMUSTINE PRIOR TO ADVERSE EVENT
     Route: 042
     Dates: start: 20200902
  2. POLATUZUMAB VEDOTIN [Suspect]
     Active Substance: POLATUZUMAB VEDOTIN
     Indication: Diffuse large B-cell lymphoma
     Dosage: ON 02/SEP/2020, RECEIVED MOST RECENT DOSE OF BLINDED POLATUZUMAB VEDOTIN PRIOR TO ADVERSE EVENT.
     Route: 042
     Dates: start: 20200902
  3. RITUXIMAB [Suspect]
     Active Substance: RITUXIMAB
     Indication: Diffuse large B-cell lymphoma
     Dosage: ON 01/SEP/2020, RECEIVED MOST RECENT DOSE (630 MG) OF RITUXIMAB PRIOR TO ADVERSE EVENT
     Route: 041
     Dates: start: 20200901
  4. IMMUNE GLOBULIN NOS [Concomitant]
     Active Substance: IMMUNE GLOBULIN NOS
     Indication: Infection prophylaxis
     Route: 065
     Dates: start: 20200903, end: 20200903
  5. IMMUNE GLOBULIN NOS [Concomitant]
     Active Substance: IMMUNE GLOBULIN NOS
     Dates: start: 20200922, end: 20200922
  6. IMMUNE GLOBULIN NOS [Concomitant]
     Active Substance: IMMUNE GLOBULIN NOS
     Dates: start: 20200923, end: 20200928
  7. COTRIMOXAZOLE [Concomitant]
     Active Substance: SULFAMETHOXAZOLE\TRIMETHOPRIM
     Indication: Product used for unknown indication
     Route: 065
     Dates: start: 20200903
  8. CELECOXIB [Concomitant]
     Active Substance: CELECOXIB
     Indication: Allergy prophylaxis
     Route: 065
     Dates: start: 20200901, end: 20200902
  9. CIMETIDINE [Concomitant]
     Active Substance: CIMETIDINE
     Indication: Product used for unknown indication
     Route: 065
     Dates: start: 20200901, end: 20200902
  10. DEXAMETHASONE [Concomitant]
     Active Substance: DEXAMETHASONE
     Indication: Allergy prophylaxis
     Dosage: 10 MILLIGRAM DAILY;
     Route: 042
     Dates: start: 20200901, end: 20200902
  11. DIPHENHYDRAMINE [Concomitant]
     Active Substance: DIPHENHYDRAMINE
     Indication: Allergy prophylaxis
     Route: 065
     Dates: start: 20200901, end: 20200902
  12. PALONOSETRON [Concomitant]
     Active Substance: PALONOSETRON
     Indication: Product used for unknown indication
     Route: 065
     Dates: start: 20200902, end: 20200903
  13. PEGYLATED RECOMBINANT HUMAN GRANULOCYTE COLONY STIMULATING FACTOR [Concomitant]
     Indication: Product used for unknown indication
     Route: 065
     Dates: start: 20200904, end: 20200904

REACTIONS (1)
  - Pneumonia [Recovered/Resolved]

NARRATIVE: CASE EVENT DATE: 20200915
